FAERS Safety Report 23479457 (Version 1)
Quarter: 2024Q1

REPORT INFORMATION
  Report Type: Spontaneous
  Country: NO (occurrence: NO)
  Receive Date: 20240205
  Receipt Date: 20240205
  Transmission Date: 20240410
  Serious: Yes (Hospitalization, Other)
  Sender: FDA-Public Use
  Company Number: None

PATIENT
  Age: 36 Year
  Sex: Female

DRUGS (1)
  1. WEGOVY [Suspect]
     Active Substance: SEMAGLUTIDE
     Indication: Overweight
     Dosage: 1,7 MG/DOSE (AS RECOMMENDED, INCREASED DOSE EVERY FOURTH WEEKS)
     Route: 058
     Dates: start: 202303

REACTIONS (5)
  - Biliary colic [Recovered/Resolved with Sequelae]
  - Pancreatitis [Unknown]
  - Cholelithiasis [Recovered/Resolved with Sequelae]
  - Cholecystitis [Unknown]
  - Weight decreased [Unknown]

NARRATIVE: CASE EVENT DATE: 20230808
